FAERS Safety Report 9049743 (Version 2)
Quarter: 2013Q1

REPORT INFORMATION
  Report Type: Spontaneous
  Country: BR (occurrence: BR)
  Receive Date: 20130205
  Receipt Date: 20130308
  Transmission Date: 20140127
  Serious: Yes (Other)
  Sender: FDA-Public Use
  Company Number: BR-PFIZER INC-2013038440

PATIENT
  Age: 79 Year
  Sex: Female
  Weight: 68 kg

DRUGS (6)
  1. XALATAN [Suspect]
     Indication: GLAUCOMA
     Dosage: 2 DROPS IN EACH EYE, 1X/DAY
     Route: 047
     Dates: start: 20060129, end: 2010
  2. XALATAN [Suspect]
     Dosage: UNK
     Route: 047
     Dates: start: 201302
  3. SOTALOL HYDROCHLORIDE [Concomitant]
     Indication: ARRHYTHMIA
     Dosage: 0.5 DF, 2X/DAY
  4. LOSARTAN [Concomitant]
     Indication: HYPERTENSION
     Dosage: 1 DF, 1X/DAY
  5. PRADAXA [Concomitant]
     Indication: ARRHYTHMIA
     Dosage: 1 DF, 2X/DAY
  6. SIMVASTATIN [Concomitant]
     Indication: HYPERCHOLESTEROLAEMIA
     Dosage: 1 DF, 1X/DAY

REACTIONS (6)
  - Cataract [Recovered/Resolved]
  - Glaucoma [Recovered/Resolved]
  - Foreign body sensation in eyes [Not Recovered/Not Resolved]
  - Eye irritation [Not Recovered/Not Resolved]
  - Eye pruritus [Not Recovered/Not Resolved]
  - Off label use [Not Recovered/Not Resolved]
